FAERS Safety Report 8474027-7 (Version None)
Quarter: 2012Q2

REPORT INFORMATION
  Report Type: 
  Country: None (occurrence: None)
  Receive Date: 20120628
  Receipt Date: 20120426
  Transmission Date: 20120825
  Serious: Yes (Hospitalization)
  Sender: FDA-Public Use
  Company Number: US-MYLANLABS-2012S1007624

PATIENT
  Age: 27 Year
  Sex: Male

DRUGS (3)
  1. LATUDA [Concomitant]
     Route: 048
  2. CLOZAPINE [Suspect]
     Dosage: 25MG QD TO 200MG
     Dates: start: 20111214, end: 20120101
  3. CLOZAPINE [Suspect]
     Indication: SCHIZOPHRENIA
     Route: 048
     Dates: start: 20111214, end: 20120109

REACTIONS (3)
  - CARDIOMYOPATHY [None]
  - MYOPERICARDITIS [None]
  - GRANULOCYTOPENIA [None]
